FAERS Safety Report 10473624 (Version 1)
Quarter: 2014Q3

REPORT INFORMATION
  Report Type: Spontaneous
  Country: CH (occurrence: None)
  Receive Date: 20140922
  Receipt Date: 20140922
  Transmission Date: 20150326
  Serious: Yes (Other)
  Sender: FDA-Public Use
  Company Number: 2014SCAL000099

PATIENT
  Age: 84 Year

DRUGS (1)
  1. CLONIDINE HYDROCHLORIDE. [Suspect]
     Active Substance: CLONIDINE HYDROCHLORIDE
     Indication: BACK PAIN
     Dosage: UNK INTRATHECAL
     Route: 037

REACTIONS (5)
  - Hallucination, visual [None]
  - Device leakage [None]
  - Hypertension [None]
  - Confusional state [None]
  - Accidental overdose [None]
